FAERS Safety Report 21407834 (Version 1)
Quarter: 2022Q4

REPORT INFORMATION
  Report Type: Report from Study
  Country: US (occurrence: US)
  Receive Date: 20221004
  Receipt Date: 20221004
  Transmission Date: 20230112
  Serious: Yes (Death)
  Sender: FDA-Public Use
  Company Number: US-JNJFOC-20220956906

PATIENT
  Age: 23 Year
  Sex: Male

DRUGS (5)
  1. SPRAVATO [Suspect]
     Active Substance: ESKETAMINE
     Indication: Depression
     Dosage: 84 MG, 1 TOTAL DOSES
     Dates: start: 20220519, end: 20220519
  2. SPRAVATO [Suspect]
     Active Substance: ESKETAMINE
     Dosage: 56MG, 1 TOTAL DOSES
     Dates: start: 20220524, end: 20220524
  3. SPRAVATO [Suspect]
     Active Substance: ESKETAMINE
     Dosage: 84 MG, 1 TOTAL DOSES
     Dates: start: 20220526, end: 20220526
  4. SPRAVATO [Suspect]
     Active Substance: ESKETAMINE
     Dosage: 56 MG, 2 TOTAL DOSES
     Dates: start: 20220616, end: 20220623
  5. SPRAVATO [Suspect]
     Active Substance: ESKETAMINE
     Dosage: 84MG, 10 TOTAL DOSES
     Dates: start: 20220628, end: 20220804

REACTIONS (1)
  - Death [Fatal]
